FAERS Safety Report 4374616-5 (Version None)
Quarter: 2004Q2

REPORT INFORMATION
  Report Type: 
  Country: None (occurrence: None)
  Receive Date: 20040604
  Receipt Date: 20040519
  Transmission Date: 20050107
  Serious: Yes (Hospitalization)
  Sender: FDA-Public Use
  Company Number: 8005997

PATIENT
  Age: 6 Year
  Sex: Male
  Weight: 26.36 kg

DRUGS (6)
  1. KEPPRA [Suspect]
     Indication: CONVULSION
     Dosage: 200 MG 2/D PO
     Route: 048
     Dates: start: 20040301, end: 20040408
  2. KEPPRA [Suspect]
     Indication: CONVULSION
     Dosage: 500 MG 2/D PO
     Route: 048
     Dates: start: 20040409, end: 20040415
  3. KEPPRA [Suspect]
     Indication: CONVULSION
     Dosage: 750 MG 2/D PO
     Route: 048
     Dates: start: 20040416, end: 20040416
  4. KEPPRA [Suspect]
     Indication: CONVULSION
     Dosage: 400 MG 2/D PO
     Route: 048
     Dates: start: 20040417
  5. DEPAKOTE [Concomitant]
  6. MYSOLINE [Concomitant]

REACTIONS (11)
  - BLOOD INSULIN DECREASED [None]
  - BLOOD PYRUVIC ACID INCREASED [None]
  - CONVULSION [None]
  - DRUG INEFFECTIVE [None]
  - ELECTROENCEPHALOGRAM ABNORMAL [None]
  - ENURESIS [None]
  - INSULIN C-PEPTIDE DECREASED [None]
  - INSULIN RESISTANCE [None]
  - METABOLIC DISORDER [None]
  - SOMNOLENCE [None]
  - TREATMENT NONCOMPLIANCE [None]
